FAERS Safety Report 9100093 (Version 1)
Quarter: 2013Q1

REPORT INFORMATION
  Report Type: Spontaneous
  Country: US (occurrence: US)
  Receive Date: 20130215
  Receipt Date: 20130215
  Transmission Date: 20140127
  Serious: Yes (Other)
  Sender: FDA-Public Use
  Company Number: US-TEVA-386170USA

PATIENT
  Age: 18 Year
  Sex: Female
  Weight: 50.85 kg

DRUGS (1)
  1. PLAN B ONE-STEP [Suspect]
     Indication: ABORTION INDUCED
     Dosage: 1.5 MILLIGRAM DAILY;
     Route: 048
     Dates: start: 20130212, end: 20130212

REACTIONS (3)
  - Exposure during pregnancy [Unknown]
  - Off label use [Unknown]
  - Pregnancy [Unknown]
